FAERS Safety Report 5288762-5 (Version None)
Quarter: 2007Q2

REPORT INFORMATION
  Report Type: 
  Country: None (occurrence: None)
  Receive Date: 20070405
  Receipt Date: 20070403
  Transmission Date: 20071010
  Serious: Yes (Death, Hospitalization)
  Sender: FDA-Public Use
  Company Number: CH-SANOFI-SYNTHELABO-F01200700252

PATIENT
  Sex: Female

DRUGS (6)
  1. METRONIDAZOLE [Concomitant]
     Dates: start: 20070129, end: 20070203
  2. ROCEPHIN [Concomitant]
     Dates: start: 20070129, end: 20070203
  3. IMPORTAL [Concomitant]
     Dates: start: 20060828
  4. GEMCITABINE [Suspect]
     Route: 041
     Dates: start: 20070124, end: 20070124
  5. CAPECITABINE [Suspect]
     Dosage: 2300 MG PER CYCLE
     Route: 048
     Dates: start: 20070124, end: 20070129
  6. OXALIPLATIN [Suspect]
     Indication: PANCREATIC CARCINOMA
     Route: 041
     Dates: start: 20070124, end: 20070124

REACTIONS (3)
  - PNEUMONIA ASPIRATION [None]
  - SEPSIS [None]
  - SYNCOPE [None]
